FAERS Safety Report 8399923 (Version 3)
Quarter: 2013Q1

REPORT INFORMATION
  Report Type: Report from Study
  Country: FR (occurrence: FR)
  Receive Date: 20120210
  Receipt Date: 20130228
  Transmission Date: 20140127
  Serious: Yes (Death)
  Sender: FDA-Public Use
  Company Number: FR-JNJFOC-20111004802

PATIENT
  Age: 71 Year
  Sex: Male
  Weight: 71 kg

DRUGS (12)
  1. ABIRATERONE ACETATE [Suspect]
     Route: 048
  2. ABIRATERONE ACETATE [Suspect]
     Indication: PROSTATE CANCER
     Route: 048
     Dates: start: 20110802, end: 20110816
  3. PREDNISONE [Suspect]
     Indication: PROSTATE CANCER
     Route: 048
  4. COVERAM [Concomitant]
     Route: 065
  5. KARDEGIC [Concomitant]
     Route: 065
  6. PARACETAMOL [Concomitant]
     Route: 065
  7. ALDACTONE [Concomitant]
     Route: 065
  8. ATENOLOL [Concomitant]
     Route: 065
  9. PLAVIX [Concomitant]
     Route: 065
  10. AN UNKNOWN MEDICATION [Concomitant]
     Route: 065
  11. ARTHOTEC [Concomitant]
     Route: 065
  12. ZOLADEX [Concomitant]
     Route: 065

REACTIONS (2)
  - Systemic inflammatory response syndrome [Fatal]
  - Septic shock [Fatal]
